FAERS Safety Report 9820660 (Version 6)
Quarter: 2014Q3

REPORT INFORMATION
  Report Type: Spontaneous
  Country: JP (occurrence: JP)
  Receive Date: 20140116
  Receipt Date: 20140821
  Transmission Date: 20150326
  Serious: Yes (Hospitalization, Other)
  Sender: FDA-Public Use
  Company Number: JP-PFIZER INC-2014011732

PATIENT
  Age: 3 Year
  Sex: Female
  Weight: 15 kg

DRUGS (2)
  1. GENOTROPIN [Suspect]
     Active Substance: SOMATROPIN
     Indication: SMALL FOR DATES BABY
     Dosage: 0.23 MG/KG, WEEKLY
     Route: 058
     Dates: start: 20110418, end: 20131205
  2. GENOTROPIN [Suspect]
     Active Substance: SOMATROPIN
     Indication: BODY HEIGHT BELOW NORMAL

REACTIONS (8)
  - Nephrotic syndrome [Recovered/Resolved]
  - Henoch-Schonlein purpura [Recovered/Resolved]
  - Urinary tract infection [Unknown]
  - Febrile convulsion [Unknown]
  - Bacterial pyelonephritis [Unknown]
  - Pneumonia adenoviral [Recovered/Resolved]
  - Bronchopneumonia [Recovered/Resolved]
  - Pneumonia [Recovered/Resolved]

NARRATIVE: CASE EVENT DATE: 20110616
